FAERS Safety Report 18911771 (Version 2)
Quarter: 2021Q1

REPORT INFORMATION
  Report Type: Spontaneous
  Country: ES (occurrence: ES)
  Receive Date: 20210218
  Receipt Date: 20210313
  Transmission Date: 20210420
  Serious: Yes (Other)
  Sender: FDA-Public Use
  Company Number: ES-CELLTRION INC.-2021ES001893

PATIENT

DRUGS (6)
  1. RITUXIMAB (UNKNOWN) [Suspect]
     Active Substance: RITUXIMAB
     Indication: NEPHROTIC SYNDROME
     Dosage: 375 MG/M2, CYCLE 1 (2 DOSES) (IN A SALINE SOLUTION OF 1 MG/ML)
     Route: 042
     Dates: start: 2017
  2. PARACETAMOL [Concomitant]
     Active Substance: ACETAMINOPHEN
     Indication: PREMEDICATION
     Dosage: 15 MG/KG
     Route: 048
  3. DEXCHLOPHENIRAMINE [Concomitant]
     Indication: PREMEDICATION
     Dosage: 0.1 MG/KG
  4. RITUXIMAB (UNKNOWN) [Suspect]
     Active Substance: RITUXIMAB
     Dosage: 375 MG/M2, CYCLE 2 (1 DOSE) (IN A SALINE SOLUTION OF 1 MG/ML)
     Route: 042
     Dates: start: 2017
  5. PREDNISONE. [Suspect]
     Active Substance: PREDNISONE
     Indication: NEPHROTIC SYNDROME
     Dosage: 40 MG/M2/48H
  6. TRIMETHOPRIM SULFAMETHOXAZOLE [Concomitant]
     Active Substance: SULFAMETHOXAZOLE\TRIMETHOPRIM
     Indication: PROPHYLAXIS

REACTIONS (4)
  - Off label use [Unknown]
  - Drug effective for unapproved indication [Unknown]
  - Disease recurrence [Unknown]
  - Nephrotic syndrome [Unknown]
